FAERS Safety Report 9331005 (Version 3)
Quarter: 2013Q3

REPORT INFORMATION
  Report Type: Report from Study
  Country: US (occurrence: US)
  Receive Date: 20130605
  Receipt Date: 20130712
  Transmission Date: 20140515
  Serious: Yes (Hospitalization)
  Sender: FDA-Public Use
  Company Number: US-ELI_LILLY_AND_COMPANY-US201301004818

PATIENT
  Age: 69 Year
  Sex: Female

DRUGS (4)
  1. TERIPARATIDE [Suspect]
     Indication: OSTEOPOROSIS
     Dosage: 20 UG, QD
     Dates: start: 20121212
  2. TERIPARATIDE [Suspect]
     Indication: BONE DISORDER
     Dosage: 20 UG, QD
     Dates: start: 20121212
  3. TERIPARATIDE [Suspect]
     Dosage: 20 UG, QD
     Dates: start: 20121212
  4. TERIPARATIDE [Suspect]
     Dosage: 20 UG, QD
     Dates: end: 201303

REACTIONS (10)
  - Urinary tract infection [Recovered/Resolved]
  - Amnesia [Unknown]
  - Tremor [Not Recovered/Not Resolved]
  - Drug dose omission [Unknown]
  - Drug dose omission [Unknown]
  - Contusion [Unknown]
  - Eye swelling [Unknown]
  - Visual impairment [Not Recovered/Not Resolved]
  - Drug dose omission [Unknown]
  - Memory impairment [Unknown]
